FAERS Safety Report 8349570-1 (Version None)
Quarter: 2012Q2

REPORT INFORMATION
  Report Type: 
  Country: None (occurrence: None)
  Receive Date: 20120510
  Receipt Date: 20120503
  Transmission Date: 20120825
  Serious: Yes (Hospitalization)
  Sender: FDA-Public Use
  Company Number: US-BAYER-2011-114454

PATIENT
  Age: 33 Year
  Sex: Female
  Weight: 72.562 kg

DRUGS (1)
  1. YAZ [Suspect]
     Indication: HORMONE THERAPY
     Dosage: UNK
     Dates: start: 20080101, end: 20090101

REACTIONS (2)
  - PULMONARY EMBOLISM [None]
  - PAIN [None]
